FAERS Safety Report 7064771-0 (Version None)
Quarter: 2010Q4

REPORT INFORMATION
  Report Type: 
  Country: None (occurrence: None)
  Receive Date: 20101027
  Receipt Date: 19810423
  Transmission Date: 20110411
  Serious: Yes (Death, Life-Threatening, Hospitalization)
  Sender: FDA-Public Use
  Company Number: US-ROCHE-810100929001

PATIENT

DRUGS (3)
  1. VALIUM [Suspect]
     Route: 048
  2. MARPLAN TABLETS [Interacting]
     Route: 048
  3. UNIDENTIFIED AGENTS [Interacting]
     Route: 048

REACTIONS (2)
  - DEATH [None]
  - HYPERPYREXIA [None]
